FAERS Safety Report 16354468 (Version 1)
Quarter: 2019Q2

REPORT INFORMATION
  Report Type: Spontaneous
  Country: FR (occurrence: FR)
  Receive Date: 20190524
  Receipt Date: 20190524
  Transmission Date: 20190711
  Serious: Yes (Hospitalization)
  Sender: FDA-Public Use
  Company Number: PHHY2019FR117496

PATIENT
  Age: 27 Year
  Sex: Female

DRUGS (9)
  1. HALDOL [Concomitant]
     Active Substance: HALOPERIDOL
     Indication: MENTAL DISORDER
  2. HALDOL [Concomitant]
     Active Substance: HALOPERIDOL
     Indication: EPILEPSY
     Dosage: UNK
     Route: 065
  3. EVEROLIMUS. [Suspect]
     Active Substance: EVEROLIMUS
     Indication: TUBEROUS SCLEROSIS COMPLEX
     Dosage: 7.5 MG, UNK
     Route: 065
  4. EVEROLIMUS. [Suspect]
     Active Substance: EVEROLIMUS
     Dosage: 10 MG, UNK
     Route: 065
  5. TERCIAN [Concomitant]
     Active Substance: CYAMEMAZINE
     Indication: EPILEPSY
     Dosage: UNK
     Route: 065
  6. EPITOMAX [Concomitant]
     Active Substance: TOPIRAMATE
     Indication: MENTAL DISORDER
  7. AFINITOR [Suspect]
     Active Substance: EVEROLIMUS
     Indication: TUBEROUS SCLEROSIS COMPLEX
     Dosage: UNK
     Route: 065
     Dates: start: 2013
  8. TERCIAN [Concomitant]
     Active Substance: CYAMEMAZINE
     Indication: MENTAL DISORDER
  9. EPITOMAX [Concomitant]
     Active Substance: TOPIRAMATE
     Indication: EPILEPSY
     Dosage: UNK
     Route: 065

REACTIONS (3)
  - Skin disorder [Unknown]
  - Hallucination, auditory [Unknown]
  - Product use in unapproved indication [Unknown]

NARRATIVE: CASE EVENT DATE: 2013
